FAERS Safety Report 7655423-4 (Version None)
Quarter: 2011Q3

REPORT INFORMATION
  Report Type: 
  Country: None (occurrence: None)
  Receive Date: 20110804
  Receipt Date: 20110726
  Transmission Date: 20111222
  Serious: Yes (Other)
  Sender: FDA-Public Use
  Company Number: SG-JNJFOC-20110707985

PATIENT
  Age: 25 Year
  Sex: Male

DRUGS (3)
  1. OXALIPLATIN [Suspect]
     Indication: HEPATIC NEOPLASM MALIGNANT
     Dosage: FOR 11 CYCLES
     Route: 065
  2. DOXORUBICIN HYDROCHLORIDE [Suspect]
     Indication: HEPATIC NEOPLASM MALIGNANT
     Dosage: FOR 11 CYCLES
     Route: 042
  3. BEVACIZUMAB [Suspect]
     Indication: HEPATIC NEOPLASM MALIGNANT
     Dosage: FOR 11 CYCLES
     Route: 065

REACTIONS (5)
  - HYPONATRAEMIA [None]
  - ANAEMIA [None]
  - HYPERCALCAEMIA [None]
  - LIVER FUNCTION TEST ABNORMAL [None]
  - VOMITING [None]
